FAERS Safety Report 17664205 (Version 1)
Quarter: 2020Q2

REPORT INFORMATION
  Report Type: Spontaneous
  Country: US (occurrence: US)
  Receive Date: 20200414
  Receipt Date: 20200414
  Transmission Date: 20200713
  Serious: Yes (Other)
  Sender: FDA-Public Use
  Company Number: US-COLGATE PALMOLIVE COMPANY-20200400653

PATIENT

DRUGS (1)
  1. COLGATE MAX FRESH CLEAN MINT [Suspect]
     Active Substance: SODIUM FLUORIDE
     Dosage: ONE SQUEEZE
     Dates: start: 20200404, end: 20200404

REACTIONS (4)
  - Product contamination physical [Unknown]
  - Tongue injury [Unknown]
  - Pain [Unknown]
  - Face injury [Unknown]

NARRATIVE: CASE EVENT DATE: 20200404
